FAERS Safety Report 24364870 (Version 1)
Quarter: 2024Q3

REPORT INFORMATION
  Report Type: Spontaneous
  Country: FR (occurrence: FR)
  Receive Date: 20240926
  Receipt Date: 20240926
  Transmission Date: 20241017
  Serious: Yes (Death, Hospitalization, Other)
  Sender: AUROBINDO
  Company Number: FR-SUN PHARMACEUTICAL INDUSTRIES LTD-2024R1-467841

PATIENT
  Age: 56 Year
  Sex: Male

DRUGS (16)
  1. FUSIDIC ACID [Suspect]
     Active Substance: FUSIDIC ACID
     Indication: Klebsiella infection
     Dosage: UNK
     Route: 065
  2. FUSIDIC ACID [Suspect]
     Active Substance: FUSIDIC ACID
     Indication: Staphylococcal infection
  3. FUSIDIC ACID [Suspect]
     Active Substance: FUSIDIC ACID
     Indication: Candida infection
  4. FUSIDIC ACID [Suspect]
     Active Substance: FUSIDIC ACID
     Indication: Enterococcal infection
  5. MEROPENEM [Suspect]
     Active Substance: MEROPENEM
     Indication: Staphylococcal infection
     Dosage: UNK
     Route: 065
  6. MEROPENEM [Suspect]
     Active Substance: MEROPENEM
     Indication: Enterococcal infection
  7. MEROPENEM [Suspect]
     Active Substance: MEROPENEM
     Indication: Klebsiella infection
  8. MEROPENEM [Suspect]
     Active Substance: MEROPENEM
     Indication: Candida infection
  9. CHLORAMPHENICOL [Suspect]
     Active Substance: CHLORAMPHENICOL
     Indication: Staphylococcal infection
     Dosage: UNK
     Route: 065
  10. CHLORAMPHENICOL [Suspect]
     Active Substance: CHLORAMPHENICOL
     Indication: Candida infection
  11. CHLORAMPHENICOL [Suspect]
     Active Substance: CHLORAMPHENICOL
     Indication: Klebsiella infection
  12. CHLORAMPHENICOL [Suspect]
     Active Substance: CHLORAMPHENICOL
     Indication: Enterococcal infection
  13. FLUCONAZOLE [Suspect]
     Active Substance: FLUCONAZOLE
     Indication: Staphylococcal infection
     Route: 065
  14. FLUCONAZOLE [Suspect]
     Active Substance: FLUCONAZOLE
     Indication: Candida infection
  15. FLUCONAZOLE [Suspect]
     Active Substance: FLUCONAZOLE
     Indication: Klebsiella infection
  16. FLUCONAZOLE [Suspect]
     Active Substance: FLUCONAZOLE
     Indication: Enterococcal infection

REACTIONS (6)
  - Multiple organ dysfunction syndrome [Fatal]
  - Abdominal distension [Unknown]
  - Abdominal pain [Unknown]
  - Metabolic acidosis [Unknown]
  - Toxicity to various agents [Unknown]
  - Vomiting [Unknown]
